FAERS Safety Report 6785739-5 (Version None)
Quarter: 2010Q2

REPORT INFORMATION
  Report Type: 
  Country: None (occurrence: None)
  Receive Date: 20100621
  Receipt Date: 20100621
  Transmission Date: 20101027
  Serious: No
  Sender: FDA-Public Use
  Company Number: None

PATIENT
  Age: 65 Year
  Sex: Male

DRUGS (5)
  1. TAMSULOSIN HCL [Suspect]
     Indication: BENIGN PROSTATIC HYPERPLASIA
     Dosage: 0.4MG CAPSULE ONCE DAILY AT BEDTIME ORAL
     Route: 048
     Dates: start: 20100608, end: 20100608
  2. PROPRANOLOL [Concomitant]
  3. SERTRALINE HCL [Concomitant]
  4. LISINOPRIL [Concomitant]
  5. SIMVASTATIN [Concomitant]

REACTIONS (4)
  - BENIGN PROSTATIC HYPERPLASIA [None]
  - DYSURIA [None]
  - PRODUCT SUBSTITUTION ISSUE [None]
  - TREATMENT FAILURE [None]
